FAERS Safety Report 9240163 (Version 1)
Quarter: 2013Q2

REPORT INFORMATION
  Report Type: Spontaneous
  Country: US (occurrence: US)
  Receive Date: 20130418
  Receipt Date: 20130418
  Transmission Date: 20140414
  Serious: No
  Sender: FDA-Public Use
  Company Number: US-SANOFI-AVENTIS-2012SA042658

PATIENT
  Age: 34 Year
  Sex: Female

DRUGS (2)
  1. LOVENOX [Suspect]
     Indication: FACTOR V DEFICIENCY
     Route: 058
     Dates: start: 201205, end: 201206
  2. ENOXAPARIN SODIUM - WINTHROP [Suspect]
     Indication: FACTOR V DEFICIENCY
     Route: 065
     Dates: start: 201205

REACTIONS (2)
  - Alopecia [Not Recovered/Not Resolved]
  - Injection site bruising [Unknown]
